FAERS Safety Report 5531480-6 (Version None)
Quarter: 2007Q4

REPORT INFORMATION
  Report Type: 
  Country: None (occurrence: None)
  Receive Date: 20071203
  Receipt Date: 20071121
  Transmission Date: 20080405
  Serious: No
  Sender: FDA-Public Use
  Company Number: FI-ELI_LILLY_AND_COMPANY-FI200711005045

PATIENT
  Sex: Female

DRUGS (13)
  1. OLANZAPINE [Suspect]
     Indication: PARANOIA
     Dosage: 5 MG, DAILY (1/D)
     Route: 048
     Dates: start: 20070910, end: 20070921
  2. OPAMOX [Concomitant]
     Indication: ANXIETY
     Dosage: 15 MG, 4/D
     Route: 048
     Dates: start: 20060101
  3. QUETIAPINE FUMARATE [Concomitant]
     Indication: BIPOLAR DISORDER
     Dosage: 200 MG, 4/D
     Route: 048
     Dates: start: 20060101
  4. OXYCONTIN [Concomitant]
     Indication: PAIN IN EXTREMITY
     Dosage: 20 MG, OTHER
     Route: 048
     Dates: start: 20050101
  5. HIPREX [Concomitant]
     Indication: PROPHYLAXIS URINARY TRACT INFECTION
     Dosage: 1 G, DAILY (1/D)
     Route: 048
     Dates: start: 20050101
  6. PRIMASPAN [Concomitant]
     Indication: THROMBOSIS PROPHYLAXIS
     Dosage: 100 MG, DAILY (1/D)
     Route: 048
     Dates: start: 20060101
  7. PREDNISOLONE [Concomitant]
     Indication: OSTEOARTHRITIS
     Dosage: 5 MG, QOD
     Route: 048
     Dates: start: 20050101
  8. DETRUSITOL [Concomitant]
     Indication: URINARY RETENTION
     Dosage: 4 MG, DAILY (1/D)
     Route: 048
     Dates: start: 20060101
  9. PANTOPRAZOLE SODIUM [Concomitant]
     Indication: PROPHYLAXIS
     Dosage: 40 MG, DAILY (1/D)
     Route: 048
     Dates: start: 20060101
  10. TENOX [Concomitant]
     Indication: SEDATIVE THERAPY
     Dosage: 20 MG, AS NEEDED
     Route: 048
     Dates: start: 20060101
  11. CIPRALEX [Concomitant]
     Indication: DEPRESSION
     Dosage: 10 MG/KG, DAILY (1/D)
     Route: 048
     Dates: start: 20070501
  12. FURESIS [Concomitant]
     Indication: OEDEMA
     Dosage: 40 MG, DAILY (1/D)
     Route: 048
     Dates: start: 20060101
  13. DUREKAL [Concomitant]
     Indication: MINERAL SUPPLEMENTATION
     Dosage: 1 G, DAILY (1/D)
     Route: 048
     Dates: start: 20060101

REACTIONS (5)
  - HAEMOGLOBIN ABNORMAL [None]
  - LYMPHOCYTE COUNT ABNORMAL [None]
  - NEUTROPHIL COUNT DECREASED [None]
  - PLATELET COUNT DECREASED [None]
  - WHITE BLOOD CELL COUNT DECREASED [None]
